FAERS Safety Report 17369727 (Version 8)
Quarter: 2020Q1

REPORT INFORMATION
  Report Type: Report from Study
  Country: FI (occurrence: FI)
  Receive Date: 20200205
  Receipt Date: 20200319
  Transmission Date: 20200409
  Serious: Yes (Hospitalization)
  Sender: FDA-Public Use
  Company Number: FI-ROCHE-2537146

PATIENT
  Age: 50 Year
  Sex: Female
  Weight: 65 kg

DRUGS (12)
  1. TRASTUZUMAB. [Suspect]
     Active Substance: TRASTUZUMAB
     Indication: HER-2 POSITIVE BREAST CANCER
     Dosage: 8-MG/KG IV LOADING DOSE AND THEN 6 MG/KG IV MAINTENANCE DOSE Q3W.?DATE OF MOST RECENT DOSE (393 MG)
     Route: 041
     Dates: start: 20190715
  2. TAMOFEN [Concomitant]
     Active Substance: TAMOXIFEN CITRATE
     Indication: HEADACHE
     Dosage: PRN (AS NEEDED)
     Route: 048
     Dates: start: 20190820
  3. DEXPANTHENOL;RETINOL;TOCOPHEROL [Concomitant]
     Indication: NASAL DRYNESS
     Route: 065
     Dates: start: 20191109
  4. TRASTUZUMAB. [Suspect]
     Active Substance: TRASTUZUMAB
  5. PANADOL [Concomitant]
     Active Substance: ACETAMINOPHEN
     Route: 048
     Dates: start: 20190730
  6. ZOLADEX [Concomitant]
     Active Substance: GOSERELIN ACETATE
     Route: 058
     Dates: start: 20191007
  7. PRIMPERAN [Concomitant]
     Active Substance: METOCLOPRAMIDE HYDROCHLORIDE
     Indication: INFUSION RELATED REACTION
     Route: 042
     Dates: start: 20190715
  8. VAXIGRIPTETRA [Concomitant]
     Active Substance: INFLUENZA VIRUS VACCINE QUADRIVALENT TYPE A+B
     Route: 030
     Dates: start: 20191112, end: 20191112
  9. PERTUZUMAB. [Suspect]
     Active Substance: PERTUZUMAB
     Indication: HER-2 POSITIVE BREAST CANCER
     Dosage: A LOADING DOSE OF 1200 MG PERTUZUMAB AND 600 MG TRASTUZUMAB IS THEN FOLLOWED BY A MAINTENANCE DOSE O
     Route: 058
     Dates: start: 20190916
  10. PERTUZUMAB. [Suspect]
     Active Substance: PERTUZUMAB
     Indication: HER-2 POSITIVE BREAST CANCER
     Dosage: 840-MG IV LOADING DOSE AND THEN 420-MG IV MAINTENANCE DOSE Q3W.?DATE OF MOST RECENT DOSE OF PERTUZUM
     Route: 042
     Dates: start: 20190715
  11. MINISUN [Concomitant]
     Active Substance: CHOLECALCIFEROL
     Route: 048
  12. IBUMAX [Concomitant]
     Active Substance: IBUPROFEN
     Dosage: PRN (AS?NEEDED)
     Route: 048
     Dates: start: 20190730, end: 20190826

REACTIONS (1)
  - Device related infection [Recovered/Resolved with Sequelae]

NARRATIVE: CASE EVENT DATE: 20200126
